FAERS Safety Report 19255201 (Version 1)
Quarter: 2021Q2

REPORT INFORMATION
  Report Type: Spontaneous
  Country: US (occurrence: US)
  Receive Date: 20210513
  Receipt Date: 20210513
  Transmission Date: 20210717
  Serious: Yes (Hospitalization, Other)
  Sender: FDA-Public Use
  Company Number: US-JNJFOC-20210511786

PATIENT
  Age: 73 Year
  Sex: Male
  Weight: 83.5 kg

DRUGS (7)
  1. PEMBROLIZUMAB. [Suspect]
     Active Substance: PEMBROLIZUMAB
     Indication: PROPHYLACTIC CHEMOTHERAPY
     Route: 065
     Dates: start: 20210108
  2. XARELTO [Suspect]
     Active Substance: RIVAROXABAN
     Route: 048
     Dates: start: 20210108
  3. CARBOPLATIN. [Suspect]
     Active Substance: CARBOPLATIN
     Indication: PROPHYLACTIC CHEMOTHERAPY
     Route: 065
     Dates: start: 20210108
  4. ENCORAFENIB [Concomitant]
     Active Substance: ENCORAFENIB
     Indication: NON-SMALL CELL LUNG CANCER
     Route: 048
     Dates: start: 20201001, end: 20201222
  5. BINIMETINIB [Concomitant]
     Active Substance: BINIMETINIB
     Indication: NON-SMALL CELL LUNG CANCER
     Route: 048
     Dates: start: 20201001, end: 20201222
  6. PEMETREXED. [Suspect]
     Active Substance: PEMETREXED
     Indication: PROPHYLACTIC CHEMOTHERAPY
     Route: 065
     Dates: start: 20210108
  7. XARELTO [Suspect]
     Active Substance: RIVAROXABAN
     Indication: THROMBOSIS PROPHYLAXIS
     Route: 048
     Dates: start: 202012, end: 20210107

REACTIONS (6)
  - Thrombocytopenia [Unknown]
  - Epistaxis [Recovered/Resolved]
  - Pyrexia [Unknown]
  - Leukopenia [Unknown]
  - C-reactive protein increased [Unknown]
  - Anaemia [Unknown]

NARRATIVE: CASE EVENT DATE: 202101
